FAERS Safety Report 9475600 (Version 1)
Quarter: 2013Q3

REPORT INFORMATION
  Report Type: Spontaneous
  Country: GB (occurrence: GB)
  Receive Date: 20130826
  Receipt Date: 20130826
  Transmission Date: 20140515
  Serious: Yes (Other)
  Sender: FDA-Public Use
  Company Number: GB-009507513-1308GBR009175

PATIENT
  Age: 19 Year
  Sex: Female
  Weight: 44.45 kg

DRUGS (7)
  1. NEXPLANON [Suspect]
     Indication: CONTRACEPTION
     Dosage: 68 MG, UNK
     Route: 059
     Dates: start: 20110316
  2. CO-AMOXICLAV [Concomitant]
  3. FLUCONAZOLE [Concomitant]
  4. IBUPROFEN [Concomitant]
  5. NITROFURANTOIN [Concomitant]
  6. PARACETAMOL [Concomitant]
     Dosage: UNK
  7. TRIMETHOPRIM [Concomitant]

REACTIONS (6)
  - Vaginal haemorrhage [Not Recovered/Not Resolved]
  - Muscle spasms [Not Recovered/Not Resolved]
  - Feeling abnormal [Not Recovered/Not Resolved]
  - Menstruation irregular [Not Recovered/Not Resolved]
  - Sexual dysfunction [Not Recovered/Not Resolved]
  - Vulvovaginal candidiasis [Not Recovered/Not Resolved]
